FAERS Safety Report 6827593-9 (Version None)
Quarter: 2010Q3

REPORT INFORMATION
  Report Type: 
  Country: None (occurrence: None)
  Receive Date: 20100709
  Receipt Date: 20070119
  Transmission Date: 20110219
  Serious: No
  Sender: FDA-Public Use
  Company Number: US-PFIZER INC-2007005937

PATIENT
  Sex: Female
  Weight: 57.15 kg

DRUGS (6)
  1. CHANTIX [Suspect]
     Indication: SMOKING CESSATION THERAPY
     Route: 048
     Dates: start: 20070101, end: 20070119
  2. LIPITOR [Concomitant]
  3. ACETYLSALICYLIC ACID [Concomitant]
  4. BISOPROLOL FUMARATE [Concomitant]
  5. LISINOPRIL [Concomitant]
  6. PAROXETINE HCL [Concomitant]

REACTIONS (2)
  - HEADACHE [None]
  - OROPHARYNGEAL DISCOMFORT [None]
